FAERS Safety Report 12717484 (Version 1)
Quarter: 2016Q3

REPORT INFORMATION
  Report Type: Spontaneous
  Country: US (occurrence: US)
  Receive Date: 20160906
  Receipt Date: 20160906
  Transmission Date: 20161109
  Serious: Yes (Disabling)
  Sender: FDA-Public Use
  Company Number: None

PATIENT
  Age: 60 Year
  Sex: Female
  Weight: 83.92 kg

DRUGS (6)
  1. CIPROFLOXACIN BAYER PHARMACEUTICALS [Suspect]
     Active Substance: CIPROFLOXACIN
     Indication: INFECTION
     Dosage: AS NEEDED, INTO A VEIN
     Route: 042
  2. MULTI VITAMIN [Concomitant]
     Active Substance: VITAMINS
  3. GABAPENTIN. [Concomitant]
     Active Substance: GABAPENTIN
  4. ALAVERT ALLERGY [Concomitant]
     Active Substance: LORATADINE
  5. IBUPROFEN. [Concomitant]
     Active Substance: IBUPROFEN
  6. ALPRAZOLAM 2 MG PFIZER [Concomitant]
     Active Substance: ALPRAZOLAM
     Indication: SLEEP DISORDER
     Dosage: 1 TABLET(S) AT BEDTIME, TAKEN BY MOUTH
     Route: 048

REACTIONS (2)
  - Disability [None]
  - Neuropathy peripheral [None]

NARRATIVE: CASE EVENT DATE: 20060901
